FAERS Safety Report 5728324-6 (Version None)
Quarter: 2008Q2

REPORT INFORMATION
  Report Type: 
  Country: None (occurrence: None)
  Receive Date: 20080430
  Receipt Date: 20080422
  Transmission Date: 20081010
  Serious: Yes (Life-Threatening, Other)
  Sender: FDA-Public Use
  Company Number: 083-C5013-07121485

PATIENT
  Age: 72 Year
  Sex: Female
  Weight: 69 kg

DRUGS (12)
  1. CC-5013 (LENALIDOMIDE) (CAPSULES) [Suspect]
     Indication: MULTIPLE MYELOMA
     Dosage: 25 MG, DAILY, ORAL; 15 MG, DAILY, ORAL
     Route: 048
     Dates: start: 20071130, end: 20071214
  2. CC-5013 (LENALIDOMIDE) (CAPSULES) [Suspect]
     Indication: MULTIPLE MYELOMA
     Dosage: 25 MG, DAILY, ORAL; 15 MG, DAILY, ORAL
     Route: 048
     Dates: start: 20080102
  3. DEXAMETHASONE TAB [Suspect]
     Indication: DRUG USE FOR UNKNOWN INDICATION
     Dosage: 40 MG, 1 IN 1 D
     Dates: start: 20071130, end: 20071203
  4. DEXAMETHASONE TAB [Suspect]
     Indication: DRUG USE FOR UNKNOWN INDICATION
     Dosage: 40 MG, 1 IN 1 D
     Dates: start: 20071208, end: 20071211
  5. LASITONE (OSYROL-LASIX) [Concomitant]
  6. XALATAN [Concomitant]
  7. RABEPRAZOLE SODIUM [Concomitant]
  8. LEVOXACIN (LEVOFLOXACIN) [Concomitant]
  9. ENOXAPARIN SODIUM [Concomitant]
  10. ACYCLOVIR [Concomitant]
  11. CO-EFFERALGAN (PANADEINE CO) [Concomitant]
  12. OMEPRAZOLE [Concomitant]

REACTIONS (3)
  - ALANINE AMINOTRANSFERASE INCREASED [None]
  - ATRIAL FIBRILLATION [None]
  - CARDIAC FAILURE CONGESTIVE [None]
